FAERS Safety Report 17572778 (Version 1)
Quarter: 2020Q1

REPORT INFORMATION
  Report Type: Spontaneous
  Country: US (occurrence: US)
  Receive Date: 20200323
  Receipt Date: 20200323
  Transmission Date: 20200409
  Serious: Yes (Other)
  Sender: FDA-Public Use
  Company Number: US-SHIRE-US202008780

PATIENT
  Sex: Female

DRUGS (2)
  1. VONVENDI [Suspect]
     Active Substance: VON WILLEBRAND FACTOR (RECOMBINANT)
     Indication: VON WILLEBRAND^S DISEASE
     Dosage: 3000 INTERNATIONAL UNIT, QOD
     Route: 065
  2. VONVENDI [Suspect]
     Active Substance: VON WILLEBRAND FACTOR (RECOMBINANT)
     Dosage: 3000 INTERNATIONAL UNIT, QOD
     Route: 065

REACTIONS (3)
  - Haemorrhage [Unknown]
  - Product supply issue [Unknown]
  - Recalled product administered [Unknown]
